FAERS Safety Report 6480010-3 (Version None)
Quarter: 2009Q4

REPORT INFORMATION
  Report Type: 
  Country: None (occurrence: None)
  Receive Date: 20091208
  Receipt Date: 20091130
  Transmission Date: 20100525
  Serious: Yes (Hospitalization)
  Sender: FDA-Public Use
  Company Number: IT-SANOFI-AVENTIS-A06200900271

PATIENT
  Age: 50 Year
  Sex: Male

DRUGS (8)
  1. OXALIPLATIN [Suspect]
     Route: 041
     Dates: start: 20090424, end: 20090424
  2. OXALIPLATIN [Suspect]
     Indication: COLON CANCER STAGE IV
     Route: 041
     Dates: start: 20090424, end: 20090424
  3. CETUXIMAB [Suspect]
     Dosage: UNIT DOSE: 2 MG
     Route: 042
     Dates: start: 20090111, end: 20090211
  4. CETUXIMAB [Suspect]
     Indication: COLON CANCER STAGE IV
     Dosage: UNIT DOSE: 2 MG
     Route: 042
     Dates: start: 20090111, end: 20090211
  5. CAMPTOSAR [Suspect]
     Dosage: UNIT DOSE: 20 MG/ML
     Route: 042
     Dates: start: 20090111, end: 20090423
  6. CAMPTOSAR [Suspect]
     Indication: COLON CANCER STAGE IV
     Dosage: UNIT DOSE: 20 MG/ML
     Route: 042
     Dates: start: 20090111, end: 20090423
  7. XELODA [Suspect]
     Route: 048
     Dates: end: 20090428
  8. XELODA [Suspect]
     Indication: COLON CANCER STAGE IV
     Route: 048
     Dates: end: 20090428

REACTIONS (3)
  - CEREBROVASCULAR ACCIDENT [None]
  - HEMIPARESIS [None]
  - SEPTIC SHOCK [None]
